FAERS Safety Report 6184638-X (Version None)
Quarter: 2009Q2

REPORT INFORMATION
  Report Type: 
  Country: None (occurrence: None)
  Receive Date: 20090508
  Receipt Date: 20090424
  Transmission Date: 20091009
  Serious: Yes (Hospitalization, Other)
  Sender: FDA-Public Use
  Company Number: BR-PFIZER INC-9904906

PATIENT
  Age: 47 Year

DRUGS (6)
  1. ZOLOFT [Suspect]
     Indication: DEPRESSION
     Route: 048
     Dates: start: 19981217, end: 19981219
  2. GALVUS [Concomitant]
     Dates: start: 20060101
  3. METFORMIN HCL [Concomitant]
     Dates: start: 20050101
  4. GLUCOBAY [Concomitant]
     Dates: start: 20040101
  5. SELOZOK [Concomitant]
     Dates: start: 20060101
  6. OMEPRAZOLE [Concomitant]
     Dates: start: 20020101

REACTIONS (5)
  - ARRHYTHMIA [None]
  - DIABETES MELLITUS [None]
  - DIZZINESS [None]
  - JOINT RANGE OF MOTION DECREASED [None]
  - TREMOR [None]
